FAERS Safety Report 14230030 (Version 2)
Quarter: 2017Q4

REPORT INFORMATION
  Report Type: Report from Study
  Country: GB (occurrence: GB)
  Receive Date: 20171128
  Receipt Date: 20171204
  Transmission Date: 20180321
  Serious: No
  Sender: FDA-Public Use
  Company Number: GB-JNJFOC-20171127791

PATIENT
  Sex: Female

DRUGS (2)
  1. STELARA [Suspect]
     Active Substance: USTEKINUMAB
     Indication: PSORIASIS
     Route: 058
  2. METHOTREXATE. [Suspect]
     Active Substance: METHOTREXATE
     Indication: PRODUCT USED FOR UNKNOWN INDICATION
     Route: 065

REACTIONS (7)
  - Sinus disorder [Not Recovered/Not Resolved]
  - Hepatic steatosis [Unknown]
  - Abdominal discomfort [Unknown]
  - Depression [Unknown]
  - Alopecia [Unknown]
  - Headache [Unknown]
  - Blister [Unknown]
